FAERS Safety Report 21500088 (Version 1)
Quarter: 2022Q4

REPORT INFORMATION
  Report Type: Spontaneous
  Country: US (occurrence: US)
  Receive Date: 20221024
  Receipt Date: 20221024
  Transmission Date: 20230113
  Serious: No
  Sender: FDA-Public Use
  Company Number: US-HORIZON THERAPEUTICS-HZN-2022-005743

PATIENT

DRUGS (1)
  1. PEGLOTICASE [Suspect]
     Active Substance: PEGLOTICASE

REACTIONS (2)
  - Therapy non-responder [Unknown]
  - Blood uric acid abnormal [Unknown]
